FAERS Safety Report 17349222 (Version 4)
Quarter: 2020Q2

REPORT INFORMATION
  Report Type: Spontaneous
  Country: US (occurrence: US)
  Receive Date: 20200130
  Receipt Date: 20200413
  Transmission Date: 20200713
  Serious: Yes (Life-Threatening, Hospitalization, Other)
  Sender: FDA-Public Use
  Company Number: US-009507513-2001USA008699

PATIENT
  Age: 41 Year
  Sex: Male
  Weight: 200 kg

DRUGS (4)
  1. BRIDION [Suspect]
     Active Substance: SUGAMMADEX
     Indication: NEUROMUSCULAR BLOCKADE REVERSAL
     Dosage: 200 MG ONE TIME ONLY. STRENGTH: 100MG/ML
     Route: 042
  2. PREGABALIN. [Concomitant]
     Active Substance: PREGABALIN
  3. ROCURONIUM BROMIDE. [Concomitant]
     Active Substance: ROCURONIUM BROMIDE
     Dosage: ^HIGH DOSE^
  4. INSULIN [Concomitant]
     Active Substance: INSULIN NOS

REACTIONS (2)
  - Bradycardia [Recovered/Resolved]
  - Cardiac arrest [Recovered/Resolved]
